FAERS Safety Report 9993790 (Version 2)
Quarter: 2014Q1

REPORT INFORMATION
  Report Type: Report from Study
  Country: FR (occurrence: FR)
  Receive Date: 20140310
  Receipt Date: 20140310
  Transmission Date: 20141002
  Serious: Yes (Hospitalization)
  Sender: FDA-Public Use
  Company Number: FR-RB-062929-14

PATIENT
  Age: 49 Year
  Sex: Male

DRUGS (1)
  1. SUBOXONE TABLET [Suspect]
     Indication: DRUG DEPENDENCE
     Dosage: IN THE MORNING
     Route: 060
     Dates: start: 20130927, end: 20140119

REACTIONS (3)
  - Diabetes mellitus [Unknown]
  - Genital burning sensation [Not Recovered/Not Resolved]
  - Urine abnormality [Not Recovered/Not Resolved]
